FAERS Safety Report 7298034-5 (Version None)
Quarter: 2011Q1

REPORT INFORMATION
  Report Type: 
  Country: None (occurrence: None)
  Receive Date: 20110217
  Receipt Date: 20110214
  Transmission Date: 20110831
  Serious: No
  Sender: FDA-Public Use
  Company Number: US-PFIZER INC-2011032836

PATIENT
  Sex: Female
  Weight: 70.295 kg

DRUGS (3)
  1. VALIUM [Concomitant]
     Dosage: UNK
  2. NORCO [Concomitant]
     Dosage: UNK
  3. CHANTIX [Suspect]
     Indication: SMOKING CESSATION THERAPY
     Dosage: 0.5 MG, 2X/DAY
     Route: 048

REACTIONS (4)
  - MOOD SWINGS [None]
  - ABNORMAL DREAMS [None]
  - IRRITABILITY [None]
  - DRUG INEFFECTIVE [None]
